FAERS Safety Report 7734276-X (Version None)
Quarter: 2011Q3

REPORT INFORMATION
  Report Type: 
  Country: None (occurrence: None)
  Receive Date: 20110907
  Receipt Date: 20110907
  Transmission Date: 20111222
  Serious: Yes (Life-Threatening, Hospitalization, Other)
  Sender: FDA-Public Use
  Company Number: GR-ABBOTT-11P-066-0850993-00

PATIENT
  Sex: Female
  Weight: 79 kg

DRUGS (1)
  1. SIBUTRAMINE HYDROCHLORIDE MONOHYDRATE [Suspect]
     Indication: WEIGHT DECREASED

REACTIONS (10)
  - ACUTE MYOCARDIAL INFARCTION [None]
  - CHEST PAIN [None]
  - VOMITING [None]
  - LOSS OF CONSCIOUSNESS [None]
  - ABDOMINAL PAIN [None]
  - CARDIAC DISORDER [None]
  - GENERAL PHYSICAL HEALTH DETERIORATION [None]
  - RESUSCITATION [None]
  - ABDOMINAL PAIN UPPER [None]
  - CARDIOVERSION [None]
